FAERS Safety Report 16302572 (Version 1)
Quarter: 2019Q2

REPORT INFORMATION
  Report Type: Spontaneous
  Country: US (occurrence: US)
  Receive Date: 20190513
  Receipt Date: 20190513
  Transmission Date: 20190711
  Serious: No
  Sender: FDA-Public Use
  Company Number: US-BRISTOL-MYERS SQUIBB COMPANY-BMS-2019-043784

PATIENT
  Age: 66 Year
  Sex: Female

DRUGS (1)
  1. KENALOG-40 [Suspect]
     Active Substance: TRIAMCINOLONE ACETONIDE
     Indication: CHALAZION
     Dosage: UNK
     Route: 065
     Dates: start: 201809, end: 201811

REACTIONS (2)
  - Eye swelling [Unknown]
  - Acne [Not Recovered/Not Resolved]
